FAERS Safety Report 10574022 (Version 1)
Quarter: 2014Q4

REPORT INFORMATION
  Report Type: Spontaneous
  Country: US (occurrence: US)
  Receive Date: 20141110
  Receipt Date: 20141110
  Transmission Date: 20150529
  Serious: Yes (Other)
  Sender: FDA-Public Use
  Company Number: CHPA2014US014902

PATIENT
  Age: 59 Year
  Sex: Female

DRUGS (4)
  1. DICLOFENAC [Suspect]
     Active Substance: DICLOFENAC
     Indication: PRODUCT USED FOR UNKNOWN INDICATION
     Dosage: UNK, BID
     Route: 048
     Dates: start: 2012
  2. VOLTAREN [Suspect]
     Active Substance: DICLOFENAC SODIUM
     Indication: OFF LABEL USE
  3. VOLTAREN [Suspect]
     Active Substance: DICLOFENAC SODIUM
     Indication: PLANTAR FASCIITIS
  4. VOLTAREN [Suspect]
     Active Substance: DICLOFENAC SODIUM
     Indication: TARSAL TUNNEL SYNDROME
     Dosage: UNK, ONCE AT BEDTIME
     Route: 061
     Dates: start: 2012

REACTIONS (8)
  - Tarsal tunnel syndrome [Unknown]
  - Arthralgia [Unknown]
  - Pain [Unknown]
  - Drug administration error [Unknown]
  - Wrong technique in drug usage process [Unknown]
  - Therapeutic response unexpected [Unknown]
  - Inappropriate schedule of drug administration [Unknown]
  - Drug ineffective for unapproved indication [Unknown]

NARRATIVE: CASE EVENT DATE: 2012
